FAERS Safety Report 4345624-5 (Version None)
Quarter: 2004Q2

REPORT INFORMATION
  Report Type: 
  Country: None (occurrence: None)
  Receive Date: 20040421
  Receipt Date: 20040409
  Transmission Date: 20050107
  Serious: Yes (Death, Hospitalization)
  Sender: FDA-Public Use
  Company Number: 04P-163-0250147-00

PATIENT
  Age: 79 Year
  Sex: Female

DRUGS (10)
  1. HUMIRA [Suspect]
     Indication: RHEUMATOID ARTHRITIS
     Dosage: 40 MG, 1 IN 2 WK, SUBCUTANEOUS
     Route: 058
     Dates: start: 20031101, end: 20040206
  2. PAROXETINE HCL [Concomitant]
  3. RISEDRONATE SODIUM [Concomitant]
  4. ATENOLOL [Concomitant]
  5. ASPIRIN [Concomitant]
  6. DIGOXIN [Concomitant]
  7. LANSOPRAZOLE [Concomitant]
  8. CALCIUM WITH VITAMIN D [Concomitant]
  9. PROPACET 100 [Concomitant]
  10. MULTI-VITAMINS [Concomitant]

REACTIONS (1)
  - CEREBROVASCULAR ACCIDENT [None]
